FAERS Safety Report 22141138 (Version 1)
Quarter: 2023Q1

REPORT INFORMATION
  Report Type: Spontaneous
  Country: US (occurrence: US)
  Receive Date: 20230327
  Receipt Date: 20230327
  Transmission Date: 20230418
  Serious: Yes (Other)
  Sender: FDA-Public Use
  Company Number: US-BAYER-2023A035942

PATIENT
  Age: 23 Year
  Sex: Female

DRUGS (4)
  1. MIRENA [Suspect]
     Active Substance: LEVONORGESTREL
     Indication: Intra-uterine contraceptive device insertion
     Dosage: 20?G/DAY
     Route: 015
     Dates: start: 201912
  2. MIRENA [Suspect]
     Active Substance: LEVONORGESTREL
     Indication: Menstruation irregular
  3. MIRENA [Suspect]
     Active Substance: LEVONORGESTREL
     Indication: Abnormal uterine bleeding
  4. MIRENA [Suspect]
     Active Substance: LEVONORGESTREL
     Indication: Vaginal haemorrhage

REACTIONS (1)
  - Genital haemorrhage [None]
